FAERS Safety Report 7972694-5 (Version None)
Quarter: 2011Q4

REPORT INFORMATION
  Report Type: 
  Country: None (occurrence: None)
  Receive Date: 20111213
  Receipt Date: 20111207
  Transmission Date: 20120403
  Serious: Yes (Hospitalization)
  Sender: FDA-Public Use
  Company Number: US-ROCHE-1020352

PATIENT
  Sex: Female

DRUGS (9)
  1. BUDESONIDE [Concomitant]
  2. PULMICORT [Concomitant]
  3. MULTI-VITAMIN [Concomitant]
  4. OMALIZUMAB [Suspect]
     Indication: ASTHMA
     Route: 058
     Dates: start: 20110607
  5. SEROQUEL [Concomitant]
  6. PREDNISOLONE [Concomitant]
  7. FISH OIL [Concomitant]
  8. CALCIUM [Concomitant]
  9. LISINOPRIL [Concomitant]

REACTIONS (1)
  - PNEUMONIA [None]
